FAERS Safety Report 9303476 (Version 1)
Quarter: 2013Q2

REPORT INFORMATION
  Report Type: Report from Study
  Country: US (occurrence: US)
  Receive Date: 20130522
  Receipt Date: 20130522
  Transmission Date: 20140414
  Serious: Yes (Other)
  Sender: FDA-Public Use
  Company Number: US-ROCHE-1225475

PATIENT
  Age: 59 Year
  Sex: Female

DRUGS (1)
  1. RANIBIZUMAB [Suspect]
     Indication: GLAUCOMA
     Route: 050
     Dates: start: 20130507

REACTIONS (4)
  - Visual acuity reduced [Not Recovered/Not Resolved]
  - Vision blurred [Not Recovered/Not Resolved]
  - Vitreous floaters [Not Recovered/Not Resolved]
  - Intraocular pressure increased [Unknown]
